FAERS Safety Report 21649179 (Version 1)
Quarter: 2022Q4

REPORT INFORMATION
  Report Type: Spontaneous
  Country: US (occurrence: US)
  Receive Date: 20221128
  Receipt Date: 20221128
  Transmission Date: 20230113
  Serious: Yes (Other)
  Sender: FDA-Public Use
  Company Number: US-AMGEN-USASP2022202259

PATIENT
  Age: 61 Year
  Sex: Female

DRUGS (4)
  1. CORLANOR [Suspect]
     Active Substance: IVABRADINE HYDROCHLORIDE
     Indication: Product used for unknown indication
     Dosage: UNK
     Route: 065
     Dates: start: 2022
  2. DILTIAZEM [Concomitant]
     Active Substance: DILTIAZEM
     Indication: Heart rate increased
     Dosage: UNK
     Route: 040
     Dates: start: 2022
  3. AMIODARONE [Concomitant]
     Active Substance: AMIODARONE
     Indication: Heart rate increased
     Dosage: UNK
     Route: 040
     Dates: start: 2022
  4. DIGOXIN [Concomitant]
     Active Substance: DIGOXIN
     Indication: Heart rate increased
     Dosage: UNK
     Route: 040
     Dates: start: 2022

REACTIONS (2)
  - Atrial flutter [Unknown]
  - Off label use [Unknown]

NARRATIVE: CASE EVENT DATE: 20220101
